FAERS Safety Report 5700456-8 (Version None)
Quarter: 2008Q2

REPORT INFORMATION
  Report Type: 
  Country: None (occurrence: None)
  Receive Date: 20080408
  Receipt Date: 20080408
  Transmission Date: 20081010
  Serious: Yes (Death)
  Sender: FDA-Public Use
  Company Number: None

PATIENT
  Age: 33 Year
  Sex: Female
  Weight: 49.8957 kg

DRUGS (1)
  1. ZOLOFT [Suspect]
     Indication: PANIC ATTACK
     Dates: start: 20030328, end: 20040723

REACTIONS (4)
  - ASPHYXIA [None]
  - COMPLETED SUICIDE [None]
  - HEADACHE [None]
  - PANIC ATTACK [None]
